FAERS Safety Report 5534784-6 (Version None)
Quarter: 2007Q4

REPORT INFORMATION
  Report Type: 
  Country: None (occurrence: None)
  Receive Date: 20071205
  Receipt Date: 20071130
  Transmission Date: 20080405
  Serious: Yes (Death, Hospitalization)
  Sender: FDA-Public Use
  Company Number: US-WYE-H01559607

PATIENT

DRUGS (3)
  1. TORISEL [Suspect]
     Indication: GLIOBLASTOMA MULTIFORME
     Dosage: 4 CYCLES; 75MG
     Route: 042
  2. DEXAMETHASONE TAB [Concomitant]
     Indication: GLIOBLASTOMA MULTIFORME
  3. TEMOZOLOMIDE [Suspect]
     Indication: GLIOBLASTOMA MULTIFORME
     Dosage: 4 CYCLES; 5 DAYS/MONTH; DOSE UNKNOWN
     Route: 065

REACTIONS (4)
  - HAEMOPHILUS SEPSIS [None]
  - HYPOTENSION [None]
  - PNEUMONIA HAEMOPHILUS [None]
  - PYURIA [None]
